FAERS Safety Report 21931167 (Version 1)
Quarter: 2023Q1

REPORT INFORMATION
  Report Type: Spontaneous
  Country: BD (occurrence: BD)
  Receive Date: 20230131
  Receipt Date: 20230131
  Transmission Date: 20230417
  Serious: Yes (Other)
  Sender: FDA-Public Use
  Company Number: BD-002147023-NVSC2023BD018044

PATIENT

DRUGS (2)
  1. OXALIPLATIN [Suspect]
     Active Substance: OXALIPLATIN
     Indication: Gastric cancer stage IV
     Dosage: 130 MG/M2, ON DAY 1, EVERY 3 WEEKS FOR 6 CYCLES
     Route: 065
  2. CAPECITABINE [Suspect]
     Active Substance: CAPECITABINE
     Indication: Gastric cancer stage IV
     Dosage: 1000 MG/M2, BID, ON DAYS 1-14, EVERY 3 WEEKS FOR 6 CYCLES
     Route: 048

REACTIONS (2)
  - Paraesthesia [Unknown]
  - Product use in unapproved indication [Unknown]
